FAERS Safety Report 13775564 (Version 1)
Quarter: 2017Q3

REPORT INFORMATION
  Report Type: Spontaneous
  Country: CN (occurrence: CN)
  Receive Date: 20170721
  Receipt Date: 20170721
  Transmission Date: 20171127
  Serious: Yes (Hospitalization, Other)
  Sender: FDA-Public Use
  Company Number: CN-BAYER-2017-138635

PATIENT
  Age: 45 Year
  Sex: Male

DRUGS (1)
  1. NEXAVAR [Suspect]
     Active Substance: SORAFENIB
     Indication: HEPATOCELLULAR CARCINOMA
     Dosage: 400 MG DAILY DOSE
     Route: 048
     Dates: start: 2013

REACTIONS (4)
  - Metastases to lung [None]
  - Hepatocellular carcinoma [None]
  - Hepatocellular carcinoma [None]
  - Hepatic cancer [None]

NARRATIVE: CASE EVENT DATE: 20140320
